FAERS Safety Report 6271102-2 (Version None)
Quarter: 2009Q3

REPORT INFORMATION
  Report Type: 
  Country: None (occurrence: None)
  Receive Date: 20090716
  Receipt Date: 20090407
  Transmission Date: 20100115
  Serious: No
  Sender: FDA-Public Use
  Company Number: US-TYCO HEALTHCARE/MALLINCKRODT-T200900841

PATIENT
  Sex: Female
  Weight: 94.331 kg

DRUGS (11)
  1. OXYCODONE HCL AND ACETAMINOPHEN [Suspect]
     Indication: PAIN
     Dosage: UNK
     Route: 048
     Dates: start: 20090401
  2. OXYCODONE HCL AND ACETAMINOPHEN [Suspect]
     Dosage: UNK
     Route: 048
     Dates: end: 20090401
  3. OXYCONTIN [Concomitant]
     Indication: PAIN
     Dosage: 20 MG, QD (1 TAB @ HS)
     Route: 048
  4. LAMICTAL [Concomitant]
     Indication: BIPOLAR DISORDER
     Dosage: UNK
     Route: 048
  5. LYRICA [Concomitant]
     Indication: PAIN
     Dosage: UNK
     Route: 048
  6. GEODON                             /01487002/ [Concomitant]
     Indication: BIPOLAR DISORDER
     Dosage: UNK
     Route: 048
  7. CLONAZEPAM [Concomitant]
     Indication: SLEEP DISORDER
     Dosage: UNK
     Route: 048
  8. TRAZODONE [Concomitant]
     Indication: SLEEP DISORDER
     Dosage: UNK
     Route: 048
  9. TRAVATAN [Concomitant]
     Indication: GLAUCOMA
     Dosage: UNK
     Route: 047
  10. SOMA [Concomitant]
     Indication: BREAKTHROUGH PAIN
     Dosage: UNK
     Route: 048
  11. CORTISONE [Concomitant]
     Indication: PAIN
     Dosage: UNK

REACTIONS (3)
  - DRUG EFFECT DECREASED [None]
  - DYSARTHRIA [None]
  - EUPHORIC MOOD [None]
